FAERS Safety Report 9169982 (Version 1)
Quarter: 2013Q1

REPORT INFORMATION
  Report Type: Spontaneous
  Country: US (occurrence: None)
  Receive Date: 20130307
  Receipt Date: 20130307
  Transmission Date: 20140127
  Serious: No
  Sender: FDA-Public Use
  Company Number: 2013CT000017

PATIENT
  Sex: Male

DRUGS (1)
  1. KORLYM [Suspect]
     Indication: PRODUCT USED FOR UNKNOWN INDICATION
     Route: 048
     Dates: end: 20130219

REACTIONS (2)
  - Lung disorder [None]
  - Endotracheal intubation [None]
